FAERS Safety Report 11242317 (Version 2)
Quarter: 2015Q4

REPORT INFORMATION
  Report Type: Report from Study
  Country: US (occurrence: US)
  Receive Date: 20150707
  Receipt Date: 20151007
  Transmission Date: 20160304
  Serious: No
  Sender: FDA-Public Use
  Company Number: PHEH2015US008184

PATIENT
  Sex: Female
  Weight: 60.32 kg

DRUGS (5)
  1. CO ENZYME Q10//UBIDECARENONE [Concomitant]
     Indication: PRODUCT USED FOR UNKNOWN INDICATION
     Route: 065
  2. HUMAN GROWTH HORMONE, RECOMBINANT [Concomitant]
     Active Substance: SOMATROPIN
     Indication: PRODUCT USED FOR UNKNOWN INDICATION
     Route: 065
  3. AMPYRA [Concomitant]
     Active Substance: DALFAMPRIDINE
     Indication: PRODUCT USED FOR UNKNOWN INDICATION
     Dosage: UNK
     Route: 065
  4. GILENYA [Suspect]
     Active Substance: FINGOLIMOD HYDROCHLORIDE
     Indication: MULTIPLE SCLEROSIS
     Dosage: 0.5 MG, QD
     Route: 048
     Dates: start: 20150330
  5. ASA [Concomitant]
     Active Substance: ASPIRIN
     Indication: PRODUCT USED FOR UNKNOWN INDICATION
     Route: 065

REACTIONS (11)
  - Dysgraphia [Recovering/Resolving]
  - Movement disorder [Unknown]
  - Central nervous system lesion [Unknown]
  - Vitreous floaters [Unknown]
  - Vision blurred [Recovering/Resolving]
  - Optic nerve disorder [Unknown]
  - Blood pressure increased [Recovering/Resolving]
  - Reading disorder [Unknown]
  - Optic neuritis [Unknown]
  - Muscle disorder [Recovering/Resolving]
  - Blood pressure diastolic increased [Recovering/Resolving]
